FAERS Safety Report 8163820-6 (Version None)
Quarter: 2012Q1

REPORT INFORMATION
  Report Type: 
  Country: None (occurrence: None)
  Receive Date: 20120224
  Receipt Date: 20120223
  Transmission Date: 20120608
  Serious: Yes (Hospitalization)
  Sender: FDA-Public Use
  Company Number: IT-PFIZER INC-2011234888

PATIENT
  Age: 14 Year
  Sex: Female

DRUGS (2)
  1. ZYPREXA [Concomitant]
     Dosage: UNK
  2. ZOLOFT [Suspect]
     Indication: DECREASED APPETITE
     Dosage: 50 MG DAILY
     Route: 048
     Dates: start: 20110820, end: 20110822

REACTIONS (3)
  - PERIORBITAL HAEMATOMA [None]
  - CONJUNCTIVAL HAEMORRHAGE [None]
  - HEADACHE [None]
